APPROVED DRUG PRODUCT: DROLBAN
Active Ingredient: DROMOSTANOLONE PROPIONATE
Strength: 50MG/ML
Dosage Form/Route: INJECTABLE;INJECTION
Application: N012936 | Product #001
Applicant: ELI LILLY AND CO
Approved: Approved Prior to Jan 1, 1982 | RLD: No | RS: No | Type: DISCN